FAERS Safety Report 7686901-X (Version None)
Quarter: 2011Q3

REPORT INFORMATION
  Report Type: 
  Country: None (occurrence: None)
  Receive Date: 20110816
  Receipt Date: 20110809
  Transmission Date: 20111222
  Serious: Yes (Other)
  Sender: FDA-Public Use
  Company Number: US-BAYER-201034261NA

PATIENT
  Age: 52 Year
  Sex: Female
  Weight: 77 kg

DRUGS (8)
  1. VERAMYST [Concomitant]
  2. YAZ [Suspect]
     Indication: CONTRACEPTION
     Route: 048
  3. VERAPAMIL [Concomitant]
  4. YASMIN [Suspect]
     Indication: CONTRACEPTION
     Dosage: UNK UNK, UNK
     Route: 048
     Dates: start: 20040101, end: 20110101
  5. ADVAIR DISKUS 100/50 [Concomitant]
  6. MUCINEX [Concomitant]
  7. LISINOPRIL [Concomitant]
  8. ALBUTEROL SULFATE AUTOHALER [Concomitant]

REACTIONS (4)
  - CHOLECYSTECTOMY [None]
  - PAIN [None]
  - CHOLELITHIASIS [None]
  - CHOLECYSTITIS CHRONIC [None]
